FAERS Safety Report 4564737-6 (Version None)
Quarter: 2005Q1

REPORT INFORMATION
  Report Type: 
  Country: None (occurrence: None)
  Receive Date: 20050128
  Receipt Date: 20040812
  Transmission Date: 20050727
  Serious: Yes (Disabling)
  Sender: FDA-Public Use
  Company Number: JP-ABBOTT-04P-087-0270911-00

PATIENT
  Sex: Female

DRUGS (10)
  1. NORVIR [Suspect]
     Indication: HIV INFECTION
     Route: 048
     Dates: start: 20040717
  2. ATAZANAVIR [Suspect]
     Indication: HIV INFECTION
     Route: 048
     Dates: start: 20040717
  3. LAMIVUDINE [Suspect]
     Indication: HIV INFECTION
     Route: 048
     Dates: start: 20040717, end: 20041018
  4. LAMIVUDINE [Suspect]
     Route: 048
     Dates: start: 20041019
  5. TENOFOVIR [Suspect]
     Indication: HIV INFECTION
     Route: 048
     Dates: start: 20040717
  6. ZIDOVUDINE [Concomitant]
     Indication: DRUG USE FOR UNKNOWN INDICATION
  7. INDINAVIR [Concomitant]
     Indication: DRUG USE FOR UNKNOWN INDICATION
  8. NELFINAVIR [Concomitant]
     Indication: DRUG USE FOR UNKNOWN INDICATION
  9. STAVUDINE [Concomitant]
     Indication: HIV INFECTION
     Route: 048
     Dates: start: 20040507, end: 20040607
  10. INDINAVIR [Concomitant]
     Indication: HIV INFECTION
     Route: 048
     Dates: start: 20040501, end: 20040607

REACTIONS (4)
  - ERYTHEMA [None]
  - HYPERBILIRUBINAEMIA [None]
  - JAUNDICE [None]
  - NAIL DISORDER [None]
